FAERS Safety Report 8450747-5 (Version None)
Quarter: 2012Q2

REPORT INFORMATION
  Report Type: 
  Country: None (occurrence: None)
  Receive Date: 20120613
  Receipt Date: 20120530
  Transmission Date: 20120825
  Serious: Yes (Other)
  Sender: FDA-Public Use
  Company Number: 2012P1034973

PATIENT
  Sex: Male

DRUGS (1)
  1. TRISEPTIN WATERLESS (NO PREF. NAME) [Suspect]
     Dates: start: 20020101

REACTIONS (2)
  - ANGIOEDEMA [None]
  - HYPERSENSITIVITY [None]
